FAERS Safety Report 8599268-X (Version None)
Quarter: 2012Q3

REPORT INFORMATION
  Report Type: 
  Country: None (occurrence: None)
  Receive Date: 20120816
  Receipt Date: 20120313
  Transmission Date: 20120928
  Serious: No
  Sender: FDA-Public Use
  Company Number: US-AMGEN-USASP2012016248

PATIENT
  Age: 82 Year
  Sex: Female

DRUGS (7)
  1. NEULASTA [Suspect]
     Indication: BREAST CANCER
     Dosage: 6 MG, Q3WK
     Dates: start: 20120104, end: 20120201
  2. DEXAMETHASONE [Concomitant]
  3. CYTOXAN [Concomitant]
  4. ENALAPRIL MALEATE [Concomitant]
  5. NEUPOGEN [Suspect]
     Indication: BREAST CANCER
     Dates: start: 20120308
  6. METOPROLOL TARTRATE [Concomitant]
  7. TAXOTERE [Concomitant]

REACTIONS (3)
  - NEUTROPENIA [None]
  - URTICARIA [None]
  - RASH [None]
